FAERS Safety Report 23257677 (Version 4)
Quarter: 2024Q1

REPORT INFORMATION
  Report Type: Spontaneous
  Country: AR (occurrence: None)
  Receive Date: 20231204
  Receipt Date: 20240119
  Transmission Date: 20240410
  Serious: Yes (Other)
  Sender: FDA-Public Use
  Company Number: AR-ROCHE-3466045

PATIENT
  Age: 65 Year
  Sex: Male
  Weight: 62 kg

DRUGS (19)
  1. GAZYVA [Suspect]
     Active Substance: OBINUTUZUMAB
     Indication: Follicular lymphoma
     Dosage: DOSE AND FREQUENCY WERE NOT REPORTED, 6 CYCLES
     Route: 042
     Dates: start: 201909
  2. GAZYVA [Suspect]
     Active Substance: OBINUTUZUMAB
     Route: 042
     Dates: start: 20190301, end: 20190801
  3. GAZYVA [Suspect]
     Active Substance: OBINUTUZUMAB
     Route: 042
     Dates: start: 20201201, end: 20210501
  4. RITUXIMAB [Suspect]
     Active Substance: RITUXIMAB
     Indication: Follicular lymphoma
     Dosage: DOSE AND FREQUENCY WERE NOT REPORTED, 4 DOSES
     Route: 065
     Dates: start: 20150701, end: 20150901
  5. RITUXIMAB [Suspect]
     Active Substance: RITUXIMAB
     Dosage: DOSE AND FREQUENCY WERE NOT REPORTED, 6 CYCLES
     Route: 065
     Dates: start: 20160101, end: 20160601
  6. RITUXIMAB [Suspect]
     Active Substance: RITUXIMAB
     Dosage: DOSE AND FREQUENCY WERE NOT REPORTED
     Route: 065
     Dates: start: 20230501, end: 20231201
  7. BENDAMUSTINE [Suspect]
     Active Substance: BENDAMUSTINE
     Indication: Follicular lymphoma
     Dosage: DOSE AND FREQUENCY WERE NOT REPORTED
     Route: 065
     Dates: start: 2016
  8. CYCLOPHOSPHAMIDE [Suspect]
     Active Substance: CYCLOPHOSPHAMIDE
     Indication: Follicular lymphoma
     Dosage: DOSE AND FREQUENCY WERE NOT REPORTED
     Route: 065
     Dates: start: 201909
  9. CYCLOPHOSPHAMIDE [Suspect]
     Active Substance: CYCLOPHOSPHAMIDE
     Route: 065
     Dates: start: 20190301, end: 20190801
  10. DOXORUBICIN [Suspect]
     Active Substance: DOXORUBICIN
     Indication: Follicular lymphoma
     Dosage: DOSE AND FREQUENCY WERE NOT REPORTED
     Route: 065
     Dates: start: 201909
  11. VINCRISTINE [Suspect]
     Active Substance: VINCRISTINE
     Indication: Follicular lymphoma
     Dosage: DOSE AND FREQUENCY WERE NOT REPORTED
     Route: 065
     Dates: start: 201909
  12. PREDNISONE [Suspect]
     Active Substance: PREDNISONE
     Indication: Follicular lymphoma
     Dosage: DOSE AND FREQUENCY WERE NOT REPORTED
     Route: 065
     Dates: start: 201909
  13. ETOPOSIDE [Suspect]
     Active Substance: ETOPOSIDE
     Indication: Follicular lymphoma
     Dosage: DOSE AND FREQUENCY WERE NOT REPORTED, 4 CYCLES
     Route: 065
     Dates: start: 20201201, end: 20210501
  14. METHYLPREDNISOLONE [Suspect]
     Active Substance: METHYLPREDNISOLONE
     Indication: Follicular lymphoma
     Dosage: DOSE AND FREQUENCY WERE NOT REPORTED, 4 CYCLES
     Route: 065
     Dates: start: 20201201, end: 20210501
  15. CYTARABINE [Suspect]
     Active Substance: CYTARABINE
     Indication: Follicular lymphoma
     Dosage: DOSE AND FREQUENCY WERE NOT REPORTED, HIGH-DOSE, 4 CYCLES
     Route: 065
     Dates: start: 20201201, end: 20210501
  16. CISPLATIN [Suspect]
     Active Substance: CISPLATIN
     Indication: Follicular lymphoma
     Dosage: DOSE AND FREQUENCY WERE NOT REPORTED, 4 CYCLES
     Route: 065
  17. LENALIDOMIDE [Suspect]
     Active Substance: LENALIDOMIDE
     Indication: Follicular lymphoma
     Dosage: DOSE AND FREQUENCY WERE NOT REPORTED
     Route: 065
     Dates: start: 20230501, end: 20231201
  18. AMIODARONE [Concomitant]
     Active Substance: AMIODARONE
  19. APIXABAN [Concomitant]
     Active Substance: APIXABAN

REACTIONS (22)
  - Neutropenic infection [Unknown]
  - Metastases to lymph nodes [Unknown]
  - Bone marrow infiltration [Unknown]
  - Pneumonia [Unknown]
  - Oedema peripheral [Unknown]
  - Leukaemia [Unknown]
  - Lymphadenopathy [Unknown]
  - Splenomegaly [Unknown]
  - Therapy partial responder [Unknown]
  - Rash [Unknown]
  - Diarrhoea [Unknown]
  - Arthralgia [Unknown]
  - Drug intolerance [Unknown]
  - Infusion related reaction [Unknown]
  - Oedema peripheral [Unknown]
  - Mental impairment [Unknown]
  - Drug intolerance [Unknown]
  - Bacterial infection [Unknown]
  - Viral infection [Unknown]
  - Disease progression [Unknown]
  - Infection [Unknown]
  - Off label use [Unknown]

NARRATIVE: CASE EVENT DATE: 20201001
